FAERS Safety Report 4435054-X (Version None)
Quarter: 2004Q3

REPORT INFORMATION
  Report Type: 
  Country: None (occurrence: None)
  Receive Date: 20040827
  Receipt Date: 20040818
  Transmission Date: 20050211
  Serious: Yes (Other)
  Sender: FDA-Public Use
  Company Number: JP-JNJFOC-20040800011

PATIENT
  Sex: Female

DRUGS (2)
  1. ITRIZOLE [Suspect]
     Indication: ONYCHOMYCOSIS
     Dosage: PULSE THERAPY 400MG/DAY
     Route: 049
     Dates: start: 20040712, end: 20040719
  2. GLYCYRRHIZIC ACID [Suspect]
     Indication: ALOPECIA AREATA
     Route: 049

REACTIONS (8)
  - HYPERALDOSTERONISM [None]
  - HYPERNATRAEMIA [None]
  - HYPOKALAEMIA [None]
  - OEDEMA [None]
  - OEDEMA PERIPHERAL [None]
  - OLIGURIA [None]
  - PSEUDOALDOSTERONISM [None]
  - WEIGHT INCREASED [None]
